FAERS Safety Report 9406492 (Version 2)
Quarter: 2013Q3

REPORT INFORMATION
  Report Type: Spontaneous
  Country: US (occurrence: US)
  Receive Date: 20130718
  Receipt Date: 20130731
  Transmission Date: 20140515
  Serious: Yes (Hospitalization)
  Sender: FDA-Public Use
  Company Number: US-AMGEN-USASP2013049038

PATIENT
  Age: 73 Year
  Sex: Female
  Weight: 51.52 kg

DRUGS (10)
  1. PROLIA [Suspect]
     Indication: OSTEOPOROSIS POSTMENOPAUSAL
     Dosage: UNK
     Route: 065
     Dates: start: 20130606
  2. ARIMIDEX [Concomitant]
     Dosage: 1 MG, QD
  3. DIPROLENE AF [Concomitant]
     Route: 061
  4. DULCOLAX                           /00064401/ [Concomitant]
     Dosage: 5 MG, UNK
  5. WELLBUTRIN XL [Concomitant]
     Dosage: 150 MG,24 HOUR
  6. SYNTHROID [Concomitant]
     Dosage: 100 MUG, UNK
  7. CYTOMEL [Concomitant]
     Dosage: 5 MUG, UNK
  8. LISINOPRIL [Concomitant]
     Dosage: 20 MG, UNK
  9. ZOCOR [Concomitant]
     Dosage: 40 MG, UNK
  10. VITAMIN D3 [Concomitant]
     Dosage: 1000 UNK, UNK

REACTIONS (3)
  - Tetany [Not Recovered/Not Resolved]
  - Hypocalcaemia [Not Recovered/Not Resolved]
  - Blood parathyroid hormone increased [Unknown]
